FAERS Safety Report 10031781 (Version 1)
Quarter: 2014Q1

REPORT INFORMATION
  Report Type: Spontaneous
  Country: US (occurrence: US)
  Receive Date: 20140324
  Receipt Date: 20140324
  Transmission Date: 20141002
  Serious: Yes (Death)
  Sender: FDA-Public Use
  Company Number: US-CELGENEUS-163-21880-14032704

PATIENT
  Age: 79 Year
  Sex: Male

DRUGS (1)
  1. REVLIMID [Suspect]
     Indication: PLASMA CELL MYELOMA
     Dosage: 5 MILLIGRAM
     Route: 048
     Dates: start: 201401, end: 2014

REACTIONS (5)
  - Renal failure [Fatal]
  - Pneumonia [Fatal]
  - Immune system disorder [Unknown]
  - Infection [Unknown]
  - Plasma cell myeloma [Unknown]
